FAERS Safety Report 4403939-6 (Version None)
Quarter: 2004Q3

REPORT INFORMATION
  Report Type: 
  Country: None (occurrence: None)
  Receive Date: 20040719
  Receipt Date: 20040701
  Transmission Date: 20050211
  Serious: Yes (Life-Threatening)
  Sender: FDA-Public Use
  Company Number: 2004-DE-03657DE(0)

PATIENT
  Age: 52 Year
  Sex: Female

DRUGS (7)
  1. MICARDIS HCT [Suspect]
     Indication: ANXIETY
     Dosage: 80 MG TELMISARTAN AND 12.5 MG HYDROCHLOROTHIAZID / DAY (NR, 1 IN 1 D) PO
     Route: 048
     Dates: start: 20030701, end: 20040208
  2. MICARDIS HCT [Suspect]
     Indication: ESSENTIAL HYPERTENSION
     Dosage: 80 MG TELMISARTAN AND 12.5 MG HYDROCHLOROTHIAZID / DAY (NR, 1 IN 1 D) PO
     Route: 048
     Dates: start: 20030701, end: 20040208
  3. BELOC-ZOK COMP (TAD) [Suspect]
     Indication: HYPERTENSION
     Dosage: 0.5 ANZ (NR, 1 IN 1 D)  PO
     Route: 048
     Dates: start: 20030701, end: 20040208
  4. INSIDON (TR) [Suspect]
     Indication: ANXIETY
     Dosage: 10 GT (NR, 1 IN 1 D) PO
     Route: 048
     Dates: start: 20040203, end: 20040208
  5. INSIDON (TR) [Suspect]
     Indication: DEPRESSION
     Dosage: 10 GT (NR, 1 IN 1 D) PO
     Route: 048
     Dates: start: 20040203, end: 20040208
  6. ZOLOFT [Suspect]
     Indication: DEPRESSION
     Dosage: 50 MG (50 MG, 1 IN 1 D) PO
     Route: 048
     Dates: start: 20040203, end: 20040208
  7. SEDARISTON (SEDARISTON) [Concomitant]

REACTIONS (9)
  - ANXIETY [None]
  - BLOOD PRESSURE INCREASED [None]
  - DEPRESSION [None]
  - HYPERHIDROSIS [None]
  - HYPOKALAEMIA [None]
  - MIDDLE INSOMNIA [None]
  - NAUSEA [None]
  - RESTLESSNESS [None]
  - TACHYCARDIA [None]
